FAERS Safety Report 15613641 (Version 2)
Quarter: 2019Q1

REPORT INFORMATION
  Report Type: Spontaneous
  Country: TW (occurrence: TW)
  Receive Date: 20181113
  Receipt Date: 20190311
  Transmission Date: 20190417
  Serious: Yes (Death, Life-Threatening, Other)
  Sender: FDA-Public Use
  Company Number: TW-BAYER-2018-204417

PATIENT
  Age: 59 Year
  Sex: Female

DRUGS (6)
  1. AVELOX [Suspect]
     Active Substance: MOXIFLOXACIN HYDROCHLORIDE
     Indication: PHARYNGITIS
  2. AVELOX [Suspect]
     Active Substance: MOXIFLOXACIN HYDROCHLORIDE
     Indication: PNEUMONIA
     Dosage: UNK
  3. NORFLOXACIN [Suspect]
     Active Substance: NORFLOXACIN
     Indication: PNEUMONIA
     Dosage: UNK
  4. DICLOFENAC [Suspect]
     Active Substance: DICLOFENAC
     Indication: PHARYNGITIS
  5. NORFLOXACIN [Suspect]
     Active Substance: NORFLOXACIN
     Indication: PHARYNGITIS
  6. DICLOFENAC [Suspect]
     Active Substance: DICLOFENAC
     Indication: PNEUMONIA
     Dosage: UNK

REACTIONS (4)
  - Anaphylactic shock [None]
  - Septic shock [Fatal]
  - Sepsis [Fatal]
  - Drug hypersensitivity [None]

NARRATIVE: CASE EVENT DATE: 2018
